FAERS Safety Report 21943665 (Version 3)
Quarter: 2023Q1

REPORT INFORMATION
  Report Type: Spontaneous
  Country: RU (occurrence: RU)
  Receive Date: 20230202
  Receipt Date: 20230208
  Transmission Date: 20230418
  Serious: Yes (Hospitalization)
  Sender: FDA-Public Use
  Company Number: RU-CHIESI-2023CHF00405

PATIENT
  Age: 2 Month
  Sex: Male

DRUGS (1)
  1. CUROSURF [Suspect]
     Active Substance: PORACTANT ALFA
     Indication: Resuscitation
     Dosage: 200 MILLIGRAM/KILOGRAM

REACTIONS (2)
  - Necrotising enterocolitis neonatal [Unknown]
  - Off label use [Unknown]
